FAERS Safety Report 9653645 (Version 2)
Quarter: 2013Q4

REPORT INFORMATION
  Report Type: Spontaneous
  Country: JP (occurrence: JP)
  Receive Date: 20131029
  Receipt Date: 20131101
  Transmission Date: 20140711
  Serious: No
  Sender: FDA-Public Use
  Company Number: JP-B.I. PHARMACEUTICALS,INC./RIDGEFIELD-2013-BI-33825NB

PATIENT
  Age: 78 Year
  Sex: Male
  Weight: 61.3 kg

DRUGS (7)
  1. TRAZENTA [Suspect]
     Indication: DIABETES MELLITUS
     Dosage: 5 MG
     Route: 048
     Dates: start: 20130911, end: 20130912
  2. UNKNOWNDRUG [Suspect]
     Indication: CORONARY ARTERIAL STENT INSERTION
     Dosage: NR
     Route: 065
     Dates: start: 20130904, end: 20130919
  3. BAYASPIRIN [Concomitant]
     Route: 065
  4. PLAVIX [Concomitant]
     Route: 065
  5. LIPITOR [Concomitant]
     Route: 065
  6. ARTIST [Concomitant]
     Route: 065
  7. TAKEPRON [Concomitant]
     Route: 065

REACTIONS (2)
  - Drug eruption [Not Recovered/Not Resolved]
  - Drug eruption [Not Recovered/Not Resolved]
